FAERS Safety Report 9727048 (Version 1)
Quarter: 2013Q4

REPORT INFORMATION
  Report Type: Spontaneous
  Country: US (occurrence: US)
  Receive Date: 20131203
  Receipt Date: 20131203
  Transmission Date: 20140711
  Serious: Yes (Other)
  Sender: FDA-Public Use
  Company Number: US-PFIZER INC-2013342847

PATIENT
  Age: 52 Year
  Sex: Female
  Weight: 98.87 kg

DRUGS (4)
  1. LIPITOR [Suspect]
     Indication: BLOOD CHOLESTEROL INCREASED
     Dosage: 40 MG, DAILY
     Route: 048
     Dates: start: 2013, end: 2013
  2. NORVASC [Concomitant]
     Indication: HYPERTENSION
     Dosage: 5 MG, 2X/DAY
  3. TOPROL XL [Concomitant]
     Indication: HYPERTENSION
     Dosage: 100 MG, DAILY
  4. ZANTAC [Concomitant]
     Indication: GASTROOESOPHAGEAL REFLUX DISEASE
     Dosage: 150 MG, UNK

REACTIONS (4)
  - Type 2 diabetes mellitus [Unknown]
  - Hypersensitivity [Unknown]
  - Swelling face [Unknown]
  - Palpitations [Unknown]
